FAERS Safety Report 10482393 (Version 2)
Quarter: 2014Q4

REPORT INFORMATION
  Report Type: Not Available
  Country: FR (occurrence: FR)
  Receive Date: 20140929
  Receipt Date: 20141009
  Transmission Date: 20150528
  Serious: Yes (Death, Hospitalization)
  Sender: FDA-Public Use
  Company Number: FR-MUNDIPHARMA DS AND PHARMACOVIGILANCE-GBR-2014-0022045

PATIENT
  Age: 56 Year
  Sex: Male

DRUGS (5)
  1. OXYCONTIN [Suspect]
     Active Substance: OXYCODONE HYDROCHLORIDE
     Indication: PAIN
     Dosage: 20 MG, DAILY
     Route: 048
     Dates: start: 20140530, end: 20140605
  2. OXYNORM [Suspect]
     Active Substance: OXYCODONE HYDROCHLORIDE
     Indication: PAIN
     Dosage: 20 MG, PRN
     Route: 048
     Dates: start: 20140530, end: 20140605
  3. ACTISKENAN [Concomitant]
     Active Substance: MORPHINE SULFATE
     Indication: QUADRIPARESIS
     Dosage: 20 MG, UNK
     Dates: start: 20140530
  4. CORTANCYL [Concomitant]
     Active Substance: PREDNISONE
     Indication: QUADRIPARESIS
     Dosage: UNK
     Dates: start: 20140530
  5. LAMALINE                           /00764901/ [Concomitant]
     Active Substance: ACETAMINOPHEN\BELLADONNA LEAF\CAFFEINE\OPIUM TINCTURE
     Indication: QUADRIPARESIS
     Dosage: 300 MG, UNK
     Dates: start: 20140530

REACTIONS (6)
  - Sepsis [Unknown]
  - Somnolence [Recovered/Resolved]
  - Miosis [Recovered/Resolved]
  - Prostatism [Unknown]
  - Overdose [Unknown]
  - Myocardial infarction [Fatal]

NARRATIVE: CASE EVENT DATE: 20140605
